FAERS Safety Report 8372522-2 (Version None)
Quarter: 2012Q2

REPORT INFORMATION
  Report Type: 
  Country: None (occurrence: None)
  Receive Date: 20120521
  Receipt Date: 20120514
  Transmission Date: 20120825
  Serious: Yes (Hospitalization)
  Sender: FDA-Public Use
  Company Number: PHHY2012CN041976

PATIENT
  Age: 41 Year
  Sex: Male

DRUGS (3)
  1. ARIPIPRAZOLE [Concomitant]
     Dosage: 10 MG, TID
     Route: 048
  2. CARBAMAZEPINE [Suspect]
     Indication: EPILEPSY
     Dosage: 0.2 G, TID
     Route: 048
  3. CLONAZEPAM [Concomitant]
     Route: 048

REACTIONS (14)
  - DIZZINESS [None]
  - DERMATITIS EXFOLIATIVE [None]
  - DECREASED APPETITE [None]
  - LIP EROSION [None]
  - CHEILOSIS [None]
  - DRUG HYPERSENSITIVITY [None]
  - CONJUNCTIVAL HYPERAEMIA [None]
  - PYREXIA [None]
  - PRURITUS [None]
  - FATIGUE [None]
  - APHASIA [None]
  - LIP HAEMORRHAGE [None]
  - SECRETION DISCHARGE [None]
  - MUCOSAL EROSION [None]
